FAERS Safety Report 9481917 (Version 2)
Quarter: 2014Q3

REPORT INFORMATION
  Report Type: Spontaneous
  Country: US (occurrence: None)
  Receive Date: 20130823
  Receipt Date: 20140804
  Transmission Date: 20150326
  Serious: Yes (Life-Threatening, Hospitalization)
  Sender: FDA-Public Use
  Company Number: 1713747-2013-99936

PATIENT
  Age: 69 Year
  Sex: Female
  Weight: 58.6 kg

DRUGS (15)
  1. FRESENIUS TUBING [Concomitant]
  2. FRESENIUS DIALYZER, CONCENTRATES [Concomitant]
  3. RENVELA [Concomitant]
     Active Substance: SEVELAMER CARBONATE
  4. 0.9% SODIUM CHLORIDE INJECTION [Suspect]
     Active Substance: SODIUM CHLORIDE
     Indication: HAEMODIALYSIS
     Dates: start: 20130708
  5. 0.9% SODIUM CHLORIDE INJECTION [Suspect]
     Active Substance: SODIUM CHLORIDE
     Indication: RENAL FAILURE CHRONIC
     Dates: start: 20130708
  6. NIFEDIPINE. [Concomitant]
     Active Substance: NIFEDIPINE
  7. ATORVASTIN [Concomitant]
     Active Substance: ATORVASTATIN
  8. CLONIDINE. [Concomitant]
     Active Substance: CLONIDINE
  9. FRESENIUS 2008T HEMODIALYSIS MACHINE [Concomitant]
  10. ANASTOZOLE [Concomitant]
  11. SENSIPAR [Concomitant]
     Active Substance: CINACALCET HYDROCHLORIDE
  12. MULTIVITAMIN [Concomitant]
     Active Substance: VITAMINS
  13. LASIX [Concomitant]
     Active Substance: FUROSEMIDE
  14. HEPARIN SODIUM (PORCINE) [Concomitant]
  15. TRAMADOL [Concomitant]
     Active Substance: TRAMADOL

REACTIONS (7)
  - Loss of consciousness [None]
  - Pulse absent [None]
  - Mouth haemorrhage [None]
  - Dyskinesia [None]
  - Dyspnoea [None]
  - Cyanosis [None]
  - Unresponsive to stimuli [None]

NARRATIVE: CASE EVENT DATE: 20130708
